FAERS Safety Report 7667098-9 (Version None)
Quarter: 2011Q3

REPORT INFORMATION
  Report Type: 
  Country: None (occurrence: None)
  Receive Date: 20110806
  Receipt Date: 20110315
  Transmission Date: 20111222
  Serious: No
  Sender: FDA-Public Use
  Company Number: US-ABBOTT-11P-163-0709787-00

PATIENT
  Sex: Male
  Weight: 102.15 kg

DRUGS (8)
  1. ALLOPURINOL [Concomitant]
     Indication: PRODUCT USED FOR UNKNOWN INDICATION
  2. MICARDIS [Concomitant]
     Indication: HYPERTENSION
  3. NIASPAN [Suspect]
     Indication: BLOOD CHOLESTEROL INCREASED
     Dosage: AT BEDTIME EVERY NIGHT
     Dates: start: 20110201
  4. GLUCOPHAGE [Concomitant]
     Indication: GLUCOSE TOLERANCE IMPAIRED
  5. ASPIRIN [Concomitant]
     Indication: PRODUCT USED FOR UNKNOWN INDICATION
     Dosage: 30 MINUTES PRIOR TO TAKING NIASPAN COATED
  6. LEVOTHYROXINE SODIUM [Concomitant]
     Indication: PRODUCT USED FOR UNKNOWN INDICATION
  7. PROCARDIA [Concomitant]
     Indication: ARRHYTHMIA
  8. PROCARDIA [Concomitant]
     Indication: BLOOD PRESSURE

REACTIONS (4)
  - SKIN BURNING SENSATION [None]
  - PRURITUS [None]
  - MUSCLE TIGHTNESS [None]
  - FLUSHING [None]
